FAERS Safety Report 19560844 (Version 2)
Quarter: 2021Q3

REPORT INFORMATION
  Report Type: Report from Study
  Country: US (occurrence: US)
  Receive Date: 20210715
  Receipt Date: 20210818
  Transmission Date: 20211014
  Serious: No
  Sender: FDA-Public Use
  Company Number: NVSC2021US153886

PATIENT
  Sex: Female

DRUGS (3)
  1. LASIX [Concomitant]
     Active Substance: FUROSEMIDE
     Indication: PRODUCT USED FOR UNKNOWN INDICATION
     Dosage: UNK, UNKNOWN
     Route: 065
  2. ENTRESTO [Suspect]
     Active Substance: SACUBITRIL\VALSARTAN
     Indication: CARDIAC FAILURE
     Dosage: UNK UNK, BID
     Route: 048
  3. LISINOPRIL/HCTZ TABLETS [Suspect]
     Active Substance: HYDROCHLOROTHIAZIDE\LISINOPRIL
     Indication: CARDIAC FAILURE
     Dosage: UNK, UNKNOWN
     Route: 065

REACTIONS (7)
  - Dizziness [Unknown]
  - Nervousness [Unknown]
  - Fluid retention [Unknown]
  - Dyspnoea [Unknown]
  - Hypotension [Unknown]
  - Insomnia [Unknown]
  - Swelling [Unknown]
